FAERS Safety Report 8958910 (Version 1)
Quarter: 2012Q4

REPORT INFORMATION
  Report Type: Spontaneous
  Country: GB (occurrence: None)
  Receive Date: 20121128
  Receipt Date: 20121128
  Transmission Date: 20130627
  Serious: Yes (Disabling)
  Sender: FDA-Public Use
  Company Number: AUR-APL-2012-04979

PATIENT
  Age: 61 Year
  Sex: Female
  Weight: 53 kg

DRUGS (6)
  1. CIPROFLOXACIN (CIPROFLOXACIN) [Suspect]
     Indication: SPONTANEOUS BACTERIAL PERITONITIS
     Dosage: (250 mg, 2 in 1 d)
     Route: 048
     Dates: start: 20120524, end: 20121102
  2. CHOLINE SALICYLATE [Concomitant]
  3. OMEPRAZOLE (OMEPRAZOLE) [Concomitant]
  4. SPIRONOLACTONE (SPIRONOLACTONE) [Concomitant]
  5. THIAMINE (THIAMINE) [Concomitant]
  6. VITAMIN B COMPLEX STRONG (B-KOMPLEX) [Concomitant]

REACTIONS (1)
  - Tardive dyskinesia [None]
